FAERS Safety Report 14739807 (Version 1)
Quarter: 2018Q2

REPORT INFORMATION
  Report Type: Spontaneous
  Country: US (occurrence: US)
  Receive Date: 20180410
  Receipt Date: 20180410
  Transmission Date: 20180711
  Serious: No
  Sender: FDA-Public Use
  Company Number: US-PFIZER INC-2018139762

PATIENT
  Age: 72 Year
  Sex: Male

DRUGS (1)
  1. ADVIL PM [Suspect]
     Active Substance: DIPHENHYDRAMINE CITRATE\IBUPROFEN
     Dosage: [IBUPROFEN 200MG]/[DIPHENHYDRAMINE CITRATE 38MG] TABLET TWICE A DAY BY MOUTH
     Route: 048
     Dates: start: 201803

REACTIONS (2)
  - Abnormal dreams [Unknown]
  - Feeling abnormal [Unknown]

NARRATIVE: CASE EVENT DATE: 2018
